FAERS Safety Report 7825362-4 (Version None)
Quarter: 2011Q4

REPORT INFORMATION
  Report Type: 
  Country: None (occurrence: None)
  Receive Date: 20111019
  Receipt Date: 20111013
  Transmission Date: 20120403
  Serious: Yes (Death)
  Sender: FDA-Public Use
  Company Number: GXKR2011DE03044

PATIENT
  Sex: Female

DRUGS (3)
  1. METHOTREXATE [Suspect]
     Dosage: 15 MG, QW
     Route: 048
  2. CORTISONE ACETATE [Concomitant]
  3. ANTIBIOTICS [Concomitant]

REACTIONS (7)
  - BONE MARROW FAILURE [None]
  - STOMATITIS [None]
  - MEDICAL OBSERVATION ABNORMAL [None]
  - DIARRHOEA [None]
  - MULTI-ORGAN FAILURE [None]
  - OVERDOSE [None]
  - DRUG PRESCRIBING ERROR [None]
